FAERS Safety Report 5624057-5 (Version None)
Quarter: 2008Q1

REPORT INFORMATION
  Report Type: 
  Country: None (occurrence: None)
  Receive Date: 20080213
  Receipt Date: 20070405
  Transmission Date: 20080703
  Serious: No
  Sender: FDA-Public Use
  Company Number: US-KINGPHARMUSA00001-K200700445

PATIENT

DRUGS (2)
  1. EPIPEN [Suspect]
     Indication: HYPERSENSITIVITY
     Dosage: UNK, TWO
     Route: 030
     Dates: start: 20070403, end: 20070403
  2. EPIPEN [Suspect]
     Dosage: UNK, SINGLE
     Route: 030
     Dates: start: 20070404, end: 20070404

REACTIONS (1)
  - DRUG INEFFECTIVE [None]
